FAERS Safety Report 4788586-9 (Version None)
Quarter: 2005Q4

REPORT INFORMATION
  Report Type: 
  Country: None (occurrence: None)
  Receive Date: 20051005
  Receipt Date: 20050711
  Transmission Date: 20060501
  Serious: Yes (Hospitalization, Other)
  Sender: FDA-Public Use
  Company Number: US-MERCK-0507USA01662

PATIENT
  Age: 5 Year
  Sex: Male
  Weight: 18 kg

DRUGS (5)
  1. SINGULAIR [Suspect]
     Indication: ASTHMA
     Route: 048
     Dates: start: 20050427, end: 20050628
  2. SINGULAIR [Suspect]
     Indication: RHINITIS ALLERGIC
     Route: 048
     Dates: start: 20050427, end: 20050628
  3. FLOVENT [Concomitant]
     Indication: ASTHMA
     Route: 055
     Dates: start: 20030101
  4. ALBUTEROL [Concomitant]
     Route: 065
     Dates: start: 20030101
  5. NASACORT [Concomitant]
     Indication: RHINITIS ALLERGIC
     Route: 065
     Dates: start: 20040101

REACTIONS (6)
  - AGITATION [None]
  - DECREASED APPETITE [None]
  - INSOMNIA [None]
  - MUSCLE SPASTICITY [None]
  - SCRATCH [None]
  - SELF INJURIOUS BEHAVIOUR [None]
